FAERS Safety Report 9252933 (Version 1)
Quarter: 2013Q2

REPORT INFORMATION
  Report Type: Spontaneous
  Country: US (occurrence: US)
  Receive Date: 20130424
  Receipt Date: 20130424
  Transmission Date: 20140414
  Serious: Yes (Other)
  Sender: FDA-Public Use
  Company Number: US-FRI-S04-USA-08048-01

PATIENT
  Age: 42 Year
  Sex: Male

DRUGS (2)
  1. LEXAPRO [Suspect]
     Indication: ANXIETY
     Route: 048
  2. LEXAPRO [Suspect]
     Indication: DEPRESSION

REACTIONS (8)
  - Homicide [Not Recovered/Not Resolved]
  - Hallucination, auditory [Unknown]
  - Anxiety [Recovering/Resolving]
  - Nervousness [Unknown]
  - Agitation [Unknown]
  - Withdrawal syndrome [Unknown]
  - Irritability [Unknown]
  - Feeling abnormal [Unknown]
